FAERS Safety Report 9083737 (Version 1)
Quarter: 2013Q1

REPORT INFORMATION
  Report Type: Report from Study
  Country: DE (occurrence: DE)
  Receive Date: 20130130
  Receipt Date: 20130130
  Transmission Date: 20140127
  Serious: Yes (Hospitalization)
  Sender: FDA-Public Use
  Company Number: DE-TEVA-380839GER

PATIENT
  Age: 69 Year
  Sex: Female
  Weight: 65 kg

DRUGS (15)
  1. DOXORUBICIN [Suspect]
     Indication: LYMPHOMA
     Route: 042
     Dates: start: 20110819
  2. PREDNISONE [Suspect]
     Indication: LYMPHOMA
     Route: 048
     Dates: start: 20110819
  3. VINCRISTINE [Suspect]
     Indication: LYMPHOMA
     Route: 042
     Dates: start: 20110819
  4. RITUXIMAB [Suspect]
     Indication: LYMPHOMA
     Dosage: 700 MILLIGRAM DAILY;
     Route: 042
     Dates: start: 20110818
  5. CYCLOPHOSPHAMIDE [Suspect]
     Indication: LYMPHOMA
     Dosage: 750 MG/M2 DAILY;
     Route: 042
     Dates: start: 20110819
  6. COLESTYRAMINE [Concomitant]
     Route: 065
  7. COLESTYRAMINE [Concomitant]
     Route: 065
  8. MIRTAZAPINE [Concomitant]
     Route: 065
  9. MIRTAZAPINE [Concomitant]
     Route: 065
  10. SEROQUEL [Concomitant]
     Route: 065
  11. SEROQUEL [Concomitant]
     Route: 065
  12. BISOHEXAL [Concomitant]
     Route: 065
  13. BISOHEXAL [Concomitant]
     Route: 065
  14. DIAZEPAM [Concomitant]
     Route: 065
  15. DIAZEPAM [Concomitant]
     Route: 065

REACTIONS (7)
  - Syncope [Recovered/Resolved]
  - Diarrhoea [Recovered/Resolved]
  - Vomiting [Recovered/Resolved]
  - Nausea [Recovered/Resolved]
  - Hyponatraemia [Recovered/Resolved]
  - Hypokalaemia [Recovered/Resolved]
  - Leukopenia [Recovered/Resolved]
